FAERS Safety Report 9187927 (Version 1)
Quarter: 2013Q1

REPORT INFORMATION
  Report Type: Spontaneous
  Country: US (occurrence: US)
  Receive Date: 20130325
  Receipt Date: 20130325
  Transmission Date: 20140127
  Serious: No
  Sender: FDA-Public Use
  Company Number: US-MYLANLABS-2012S1018718

PATIENT
  Age: 65 Year
  Sex: Female
  Weight: 83.92 kg

DRUGS (8)
  1. FENTANYL TRANSDERMAL SYSTEM [Suspect]
     Indication: BACK PAIN
     Route: 062
     Dates: start: 2012
  2. STEROIDS [Concomitant]
     Indication: BACK PAIN
     Route: 030
     Dates: start: 20120904
  3. BLOOD PRESSURE MEDICATION [Concomitant]
  4. CHOLESTEROL MEDICATION [Concomitant]
     Indication: BLOOD CHOLESTEROL INCREASED
  5. AMBIEN [Concomitant]
     Indication: INSOMNIA
  6. ANTIDEPRESSANTS [Concomitant]
     Indication: DEPRESSION
  7. PREMARIN /00073001/ [Concomitant]
  8. NEXIUM [Concomitant]
     Indication: ABDOMINAL OPERATION

REACTIONS (5)
  - Overdose [Recovering/Resolving]
  - Dizziness [Recovering/Resolving]
  - Disorientation [Recovering/Resolving]
  - Miosis [Recovering/Resolving]
  - Intentional drug misuse [Recovering/Resolving]
